FAERS Safety Report 4907401-3 (Version None)
Quarter: 2006Q1

REPORT INFORMATION
  Report Type: 
  Country: None (occurrence: None)
  Receive Date: 20060208
  Receipt Date: 20060208
  Transmission Date: 20060701
  Serious: Yes (Hospitalization)
  Sender: FDA-Public Use
  Company Number: None

PATIENT
  Age: 80 Year
  Sex: Male
  Weight: 77.4 kg

DRUGS (6)
  1. TERAZOSIN [Suspect]
     Indication: BENIGN PROSTATIC HYPERPLASIA
     Dosage: 5 MG QHS PO
     Route: 048
     Dates: start: 20050314
  2. METOPROLOL [Suspect]
     Indication: BLOOD PRESSURE
     Dosage: 25 MG QPM PO
     Route: 048
     Dates: start: 19991102
  3. CLOTRIMAZOLE [Concomitant]
  4. ISOSORBIDE DINITRATE [Concomitant]
  5. ZOCOR [Concomitant]
  6. CHLORPHENIRAMINE MALEATE [Concomitant]

REACTIONS (8)
  - COUGH [None]
  - DIZZINESS [None]
  - DRUG DOSE OMISSION [None]
  - DYSKINESIA [None]
  - HYPOTENSION [None]
  - LOSS OF CONSCIOUSNESS [None]
  - MEDICATION ERROR [None]
  - URINARY INCONTINENCE [None]
